FAERS Safety Report 14879064 (Version 2)
Quarter: 2019Q3

REPORT INFORMATION
  Report Type: Spontaneous
  Country: US (occurrence: US)
  Receive Date: 20180511
  Receipt Date: 20190913
  Transmission Date: 20191004
  Serious: No
  Sender: FDA-Public Use
  Company Number: US-SA-2018SA019820

PATIENT
  Age: 85 Year
  Sex: Female

DRUGS (4)
  1. APIDRA SOLOSTAR [Suspect]
     Active Substance: INSULIN GLULISINE
     Indication: TYPE 2 DIABETES MELLITUS
     Dosage: UNK UNK,TID
     Route: 058
     Dates: start: 2015
  2. LANTUS [Concomitant]
     Active Substance: INSULIN GLARGINE
     Dosage: UNK UNK,HS
     Route: 065
  3. VELTASSA [Concomitant]
     Active Substance: PATIROMER
     Dosage: UNK UNK,UNK
     Route: 065
  4. APIDRA SOLOSTAR [Suspect]
     Active Substance: INSULIN GLULISINE
     Dosage: 10-13 UNITS IN THE AM, IF SHE EATS LUNCH, 16 UNITS, 26 AT DINNER AND 5 AT BEDTIME
     Route: 065

REACTIONS (4)
  - Eye disorder [Recovered/Resolved]
  - Blood glucose increased [Recovered/Resolved]
  - Visual impairment [Recovered/Resolved]
  - Product storage error [Unknown]

NARRATIVE: CASE EVENT DATE: 20180112
